FAERS Safety Report 8962331 (Version 1)
Quarter: 2012Q4

REPORT INFORMATION
  Report Type: Spontaneous
  Country: US (occurrence: None)
  Receive Date: 20121211
  Receipt Date: 20121211
  Transmission Date: 20130627
  Serious: No
  Sender: FDA-Public Use
  Company Number: None

PATIENT
  Sex: Female
  Weight: 61.24 kg

DRUGS (1)
  1. XARELTO [Suspect]
     Indication: HIP REPLACEMENT
     Dosage: 1 tab daily
     Dates: start: 20120927, end: 20121005

REACTIONS (1)
  - Urticaria [None]
